FAERS Safety Report 11745756 (Version 1)
Quarter: 2015Q4

REPORT INFORMATION
  Report Type: Spontaneous
  Country: US (occurrence: None)
  Receive Date: 20151116
  Receipt Date: 20151116
  Transmission Date: 20160304
  Serious: Yes (Other)
  Sender: FDA-Public Use
  Company Number: None

PATIENT
  Age: 61 Year
  Sex: Female
  Weight: 72.58 kg

DRUGS (2)
  1. VENLAFAXINE [Suspect]
     Active Substance: VENLAFAXINE HYDROCHLORIDE
     Indication: ANXIETY
     Dosage: 2 PILLS PRE DAY
     Route: 048
     Dates: start: 20131101, end: 20151115
  2. VENLAFAXINE [Suspect]
     Active Substance: VENLAFAXINE HYDROCHLORIDE
     Indication: DEPRESSION
     Dosage: 2 PILLS PRE DAY
     Route: 048
     Dates: start: 20131101, end: 20151115

REACTIONS (4)
  - Cerebral disorder [None]
  - Sensory disturbance [None]
  - Paraesthesia oral [None]
  - Drug dose omission [None]

NARRATIVE: CASE EVENT DATE: 20151114
